FAERS Safety Report 13749518 (Version 3)
Quarter: 2017Q4

REPORT INFORMATION
  Report Type: Spontaneous
  Country: AU (occurrence: AU)
  Receive Date: 20170713
  Receipt Date: 20171002
  Transmission Date: 20180320
  Serious: Yes (Other)
  Sender: FDA-Public Use
  Company Number: AU-PFIZER INC-2017296832

PATIENT
  Age: 35 Year
  Sex: Female
  Weight: 92 kg

DRUGS (3)
  1. CHAMPIX [Suspect]
     Active Substance: VARENICLINE TARTRATE
     Indication: SMOKING CESSATION THERAPY
     Dosage: 0.5 MG, UNK
     Route: 048
     Dates: start: 20160226, end: 2016
  2. CHAMPIX [Suspect]
     Active Substance: VARENICLINE TARTRATE
     Dosage: 1 MG, 2X/DAY
     Route: 048
     Dates: start: 2016, end: 201606
  3. OROXINE [Concomitant]
     Active Substance: LEVOTHYROXINE SODIUM
     Indication: THYROIDITIS
     Dosage: 75 UG, 1X/DAY
     Route: 048

REACTIONS (1)
  - Drop attacks [Not Recovered/Not Resolved]

NARRATIVE: CASE EVENT DATE: 201606
